FAERS Safety Report 11100664 (Version 1)
Quarter: 2015Q2

REPORT INFORMATION
  Report Type: Spontaneous
  Country: US (occurrence: None)
  Receive Date: 20150506
  Receipt Date: 20150506
  Transmission Date: 20150821
  Serious: Yes (Hospitalization, Other)
  Sender: FDA-Public Use
  Company Number: US2015057074

PATIENT
  Age: 61 Year
  Sex: Male

DRUGS (9)
  1. SELZENTRY [Suspect]
     Active Substance: MARAVIROC
     Indication: HIV INFECTION
     Dosage: ONGOING?300 MG, BID, ORAL
     Route: 048
  2. TENOFOVIR (TENOFOVIR) UNKNOWN [Concomitant]
     Active Substance: TENOFOVIR
  3. LORAZEPAM. [Concomitant]
     Active Substance: LORAZEPAM
  4. TRAMADOL (TRAMADOL HYDROCHLORIDE) UNKNOWN [Concomitant]
  5. EMTRICITABINE [Concomitant]
     Active Substance: EMTRICITABINE
  6. TRUVADA [Concomitant]
     Active Substance: EMTRICITABINE\TENOFOVIR DISOPROXIL FUMARATE
  7. POTASSIUM CHLORIDE UNKNOWN [Concomitant]
  8. DARUNAVIR + RITONAVIR [Concomitant]
     Active Substance: DARUNAVIR\RITONAVIR
  9. ISENTRESS [Concomitant]
     Active Substance: RALTEGRAVIR POTASSIUM

REACTIONS (5)
  - Renal impairment [None]
  - Weight decreased [None]
  - Constipation [None]
  - Nausea [None]
  - Vomiting [None]

NARRATIVE: CASE EVENT DATE: 201408
